FAERS Safety Report 11038234 (Version 3)
Quarter: 2015Q3

REPORT INFORMATION
  Report Type: Spontaneous
  Country: US (occurrence: US)
  Receive Date: 20150416
  Receipt Date: 20150821
  Transmission Date: 20151125
  Serious: Yes (Death, Hospitalization, Other)
  Sender: FDA-Public Use
  Company Number: US-MERCK-1504USA015484

PATIENT
  Sex: Male
  Weight: 90.7 kg

DRUGS (1)
  1. JANUVIA [Suspect]
     Active Substance: SITAGLIPTIN PHOSPHATE
     Indication: TYPE 2 DIABETES MELLITUS
     Dosage: 100 MG, QD
     Route: 048
     Dates: start: 20100225, end: 201011

REACTIONS (14)
  - Deep vein thrombosis [Unknown]
  - Benign prostatic hyperplasia [Unknown]
  - Neuropathy peripheral [Unknown]
  - Transplant [Unknown]
  - Metastases to peritoneum [Unknown]
  - Joint surgery [Unknown]
  - Anaemia [Unknown]
  - Adenocarcinoma pancreas [Fatal]
  - Tonsillectomy [Unknown]
  - Carpal tunnel syndrome [Unknown]
  - Hyperlipidaemia [Unknown]
  - Vena cava filter insertion [Unknown]
  - Depression [Unknown]
  - Pulmonary embolism [Unknown]

NARRATIVE: CASE EVENT DATE: 20100312
